FAERS Safety Report 7532478-9 (Version None)
Quarter: 2011Q2

REPORT INFORMATION
  Report Type: 
  Country: None (occurrence: None)
  Receive Date: 20110608
  Receipt Date: 20110526
  Transmission Date: 20111010
  Serious: Yes (Other)
  Sender: FDA-Public Use
  Company Number: PHHY2011US46986

PATIENT
  Sex: Female

DRUGS (9)
  1. CITRACAL [Concomitant]
  2. MULTI-VITAMINS [Concomitant]
  3. ADVAIR DISKUS 100/50 [Concomitant]
  4. PREVACID [Concomitant]
  5. ETHINYL ESTRADIOL AND NORETHINDRONE [Concomitant]
  6. GILENYA [Suspect]
     Indication: MULTIPLE SCLEROSIS
     Dosage: 0.5 MG, QD
     Route: 048
     Dates: start: 20110428
  7. OXYBUTYNIN [Concomitant]
  8. AMLODIPINE [Concomitant]
  9. BENICAR [Concomitant]

REACTIONS (2)
  - GAIT DISTURBANCE [None]
  - HYPOAESTHESIA [None]
